FAERS Safety Report 4816251-8 (Version None)
Quarter: 2005Q4

REPORT INFORMATION
  Report Type: 
  Country: None (occurrence: None)
  Receive Date: 20051026
  Receipt Date: 20051013
  Transmission Date: 20060501
  Serious: Yes (Death, Other)
  Sender: FDA-Public Use
  Company Number: 430002L05FRA

PATIENT
  Age: 51 Year
  Sex: Female

DRUGS (3)
  1. MITOXANTRONE [Suspect]
     Indication: SECONDARY PROGRESSIVE MULTIPLE SCLEROSIS
     Dosage: 20 MG,
     Dates: start: 19990301, end: 20000301
  2. AZATHIOPRINE [Suspect]
     Dates: start: 20000501, end: 20011101
  3. INTERFERON BETA (INTERFERON BETA) [Concomitant]

REACTIONS (3)
  - ACUTE MYELOID LEUKAEMIA [None]
  - LUNG DISORDER [None]
  - SEPTIC SHOCK [None]
